FAERS Safety Report 18933267 (Version 1)
Quarter: 2021Q1

REPORT INFORMATION
  Report Type: Spontaneous
  Country: US (occurrence: US)
  Receive Date: 20210224
  Receipt Date: 20210224
  Transmission Date: 20210420
  Serious: No
  Sender: FDA-Public Use
  Company Number: US-ASTRAZENECA-2021A059790

PATIENT
  Age: 69 Year
  Sex: Female

DRUGS (3)
  1. TYLENOL EXTRA STRENGTH [Concomitant]
     Active Substance: ACETAMINOPHEN
     Indication: BONE PAIN
     Dosage: TYLENOL IN THE MORNING, ONE IN THE AFTERNOON, AS REQUIRED
  2. TYLENOL EXTRA STRENGTH [Concomitant]
     Active Substance: ACETAMINOPHEN
     Indication: HIP ARTHROPLASTY
     Dosage: TYLENOL IN THE MORNING, ONE IN THE AFTERNOON, AS REQUIRED
  3. ROSUVASTATIN CALCIUM. [Suspect]
     Active Substance: ROSUVASTATIN CALCIUM
     Indication: BLOOD CHOLESTEROL INCREASED
     Dosage: UNKNOWN
     Route: 048

REACTIONS (7)
  - Chills [Unknown]
  - Abnormal dreams [Unknown]
  - Musculoskeletal discomfort [Not Recovered/Not Resolved]
  - Dizziness [Unknown]
  - Bone pain [Not Recovered/Not Resolved]
  - Tremor [Unknown]
  - Insomnia [Unknown]
